FAERS Safety Report 23790108 (Version 1)
Quarter: 2024Q2

REPORT INFORMATION
  Report Type: Spontaneous
  Country: DE (occurrence: DE)
  Receive Date: 20240426
  Receipt Date: 20240426
  Transmission Date: 20240716
  Serious: Yes (Life-Threatening, Hospitalization, Other)
  Sender: FDA-Public Use
  Company Number: DE-009507513-2404DEU010211

PATIENT
  Sex: Female

DRUGS (1)
  1. PEMBROLIZUMAB [Suspect]
     Active Substance: PEMBROLIZUMAB
     Indication: Triple negative breast cancer
     Dosage: 200 MILLIGRAM, Q3W
     Dates: start: 20230912

REACTIONS (11)
  - Ketoacidosis [Unknown]
  - Thyroiditis subacute [Unknown]
  - Febrile neutropenia [Unknown]
  - Cortisol decreased [Unknown]
  - Blood corticotrophin decreased [Unknown]
  - Hypophysitis [Unknown]
  - General physical health deterioration [Unknown]
  - Nausea [Unknown]
  - Vomiting [Unknown]
  - Diarrhoea [Unknown]
  - Hyponatraemia [Unknown]

NARRATIVE: CASE EVENT DATE: 20231207
